FAERS Safety Report 6543909-5 (Version None)
Quarter: 2010Q1

REPORT INFORMATION
  Report Type: 
  Country: None (occurrence: None)
  Receive Date: 20100120
  Receipt Date: 20100115
  Transmission Date: 20100710
  Serious: Yes (Death, Other)
  Sender: FDA-Public Use
  Company Number: US-JNJFOC-20100106592

PATIENT
  Age: 60 Year
  Sex: Female

DRUGS (8)
  1. HALOPERIDOL [Suspect]
     Indication: SUICIDE ATTEMPT
     Route: 065
  2. VALPROIC ACID [Suspect]
     Indication: SUICIDE ATTEMPT
     Route: 048
  3. CLONAZEPAM [Suspect]
     Indication: SUICIDE ATTEMPT
     Route: 048
  4. LISINOPRIL [Suspect]
     Indication: SUICIDE ATTEMPT
     Route: 048
  5. LOSARTAN POTASSIUM [Suspect]
     Indication: SUICIDE ATTEMPT
     Route: 048
  6. CALCIUM BLOCKER [Suspect]
     Indication: SUICIDE ATTEMPT
     Route: 048
  7. METFORMIN [Suspect]
     Indication: SUICIDE ATTEMPT
     Route: 048
  8. SIMVASTATIN [Suspect]
     Indication: SUICIDE ATTEMPT
     Route: 048

REACTIONS (1)
  - DRUG TOXICITY [None]
